FAERS Safety Report 12896814 (Version 1)
Quarter: 2016Q4

REPORT INFORMATION
  Report Type: Spontaneous
  Country: JP (occurrence: JP)
  Receive Date: 20161031
  Receipt Date: 20161031
  Transmission Date: 20170207
  Serious: Yes (Other)
  Sender: FDA-Public Use
  Company Number: JP-PFIZER INC-2016492792

PATIENT
  Age: 72 Year
  Sex: Female

DRUGS (1)
  1. SUTENT [Suspect]
     Active Substance: SUNITINIB MALATE
     Dosage: UNK
     Route: 048
     Dates: start: 200910, end: 201109

REACTIONS (4)
  - Metastases to lung [Unknown]
  - Renal impairment [Unknown]
  - Pneumonia bacterial [Unknown]
  - Pleural effusion [Unknown]

NARRATIVE: CASE EVENT DATE: 201109
